FAERS Safety Report 6060167-9 (Version None)
Quarter: 2009Q1

REPORT INFORMATION
  Report Type: 
  Country: None (occurrence: None)
  Receive Date: 20090128
  Receipt Date: 20090120
  Transmission Date: 20090719
  Serious: Yes (Hospitalization)
  Sender: FDA-Public Use
  Company Number: 200911750GPV

PATIENT
  Age: 38 Year
  Sex: Male

DRUGS (5)
  1. FLUDARA [Suspect]
     Indication: DRUG USE FOR UNKNOWN INDICATION
     Dates: start: 20080201
  2. RITUXAN [Suspect]
     Indication: DRUG USE FOR UNKNOWN INDICATION
     Dates: end: 20080201
  3. CYCLOPHOSPHAMIDE [Suspect]
     Indication: DRUG USE FOR UNKNOWN INDICATION
     Dates: start: 20080201
  4. ADRIAMYCIN PFS [Concomitant]
  5. CYCLOPHOSPHAMIDE [Concomitant]

REACTIONS (7)
  - APLASIA [None]
  - ASTHENIA [None]
  - DIARRHOEA [None]
  - MALAISE [None]
  - PLEURAL HAEMORRHAGE [None]
  - PYREXIA [None]
  - VARICELLA [None]
